FAERS Safety Report 23201277 (Version 1)
Quarter: 2023Q4

REPORT INFORMATION
  Report Type: Report from Study
  Country: GB (occurrence: GB)
  Receive Date: 20231118
  Receipt Date: 20231118
  Transmission Date: 20240109
  Serious: Yes (Hospitalization, Other)
  Sender: FDA-Public Use
  Company Number: GB-ALXN-A202205087

PATIENT
  Sex: Female

DRUGS (3)
  1. ULTOMIRIS [Suspect]
     Active Substance: RAVULIZUMAB-CWVZ
     Indication: Atypical haemolytic uraemic syndrome
     Dosage: UNK
     Route: 065
     Dates: start: 20220214, end: 20220228
  2. ULTOMIRIS [Suspect]
     Active Substance: RAVULIZUMAB-CWVZ
     Dosage: 3300 MG, 8 WEEKLY
     Route: 042
     Dates: start: 20220228
  3. PENICILLIN G [Concomitant]
     Active Substance: PENICILLIN G
     Indication: Antibiotic prophylaxis
     Dosage: 500 MG, BID
     Route: 065

REACTIONS (13)
  - Lower respiratory tract infection [Recovered/Resolved]
  - Malaise [Unknown]
  - Pain in extremity [Unknown]
  - Poor venous access [Unknown]
  - Heart rate increased [Unknown]
  - Cough [Unknown]
  - Wheezing [Unknown]
  - Urine odour abnormal [Unknown]
  - Stoma site odour [Unknown]
  - Arteriovenous fistula [Unknown]
  - Arthralgia [Not Recovered/Not Resolved]
  - Fatigue [Recovering/Resolving]
  - Pyrexia [Unknown]
